FAERS Safety Report 13708337 (Version 2)
Quarter: 2017Q3

REPORT INFORMATION
  Report Type: Report from Study
  Country: US (occurrence: BR)
  Receive Date: 20170630
  Receipt Date: 20170829
  Transmission Date: 20171127
  Serious: Yes (Death)
  Sender: FDA-Public Use
  Company Number: US-SUNOVION-2017SUN002745

PATIENT
  Age: 73 Year
  Sex: Male

DRUGS (2)
  1. GLYCOPYRROLATE. [Suspect]
     Active Substance: GLYCOPYRROLATE
     Indication: FATIGUE
     Dosage: UNKNOWN, 0.05 MG
     Route: 065
  2. ONBREZ [Suspect]
     Active Substance: INDACATEROL
     Indication: FATIGUE
     Dosage: UNK
     Route: 065

REACTIONS (6)
  - Death [Fatal]
  - Emphysema [Unknown]
  - Asthenia [Unknown]
  - Product use in unapproved indication [Unknown]
  - Weight decreased [Unknown]
  - Pigmentation disorder [Unknown]

NARRATIVE: CASE EVENT DATE: 20161104
